FAERS Safety Report 12852960 (Version 2)
Quarter: 2017Q2

REPORT INFORMATION
  Report Type: Spontaneous
  Country: US (occurrence: US)
  Receive Date: 20161017
  Receipt Date: 20170510
  Transmission Date: 20170830
  Serious: No
  Sender: FDA-Public Use
  Company Number: US-JAZZ-2016-US-013959

PATIENT
  Sex: Female

DRUGS (10)
  1. XYREM [Suspect]
     Active Substance: SODIUM OXYBATE
     Indication: NARCOLEPSY
     Dosage: 2.25 G, BID
     Route: 048
     Dates: start: 201006, end: 201006
  2. IRON [Concomitant]
     Active Substance: IRON
  3. XYREM [Suspect]
     Active Substance: SODIUM OXYBATE
     Indication: CATAPLEXY
     Dosage: DOSE ADJUSTMENTS
     Route: 048
     Dates: start: 201006, end: 201012
  4. MVI [Concomitant]
     Active Substance: VITAMINS
  5. NUVIGIL [Concomitant]
     Active Substance: ARMODAFINIL
  6. ZOFRAN [Concomitant]
     Active Substance: ONDANSETRON HYDROCHLORIDE
  7. IBUDILAST [Concomitant]
     Active Substance: IBUDILAST
  8. IMIPRAMINE [Concomitant]
     Active Substance: IMIPRAMINE
  9. PROVIGIL [Concomitant]
     Active Substance: MODAFINIL
  10. XYREM [Suspect]
     Active Substance: SODIUM OXYBATE
     Dosage: 4.5 G, BID
     Route: 048
     Dates: start: 201012

REACTIONS (1)
  - Exposure during pregnancy [Unknown]

NARRATIVE: CASE EVENT DATE: 2016
